FAERS Safety Report 24206059 (Version 3)
Quarter: 2024Q3

REPORT INFORMATION
  Report Type: Spontaneous
  Country: IN (occurrence: IN)
  Receive Date: 20240813
  Receipt Date: 20240821
  Transmission Date: 20241017
  Serious: Yes (Hospitalization, Other)
  Sender: PFIZER
  Company Number: IN-MLMSERVICE-20240731-PI149047-00195-1

PATIENT
  Age: 30 Year
  Sex: Female

DRUGS (4)
  1. CYTARABINE [Suspect]
     Active Substance: CYTARABINE
     Indication: Acute myeloid leukaemia
     Dosage: UNK, 7 + 3 REGIMEN
     Dates: start: 202111
  2. DAUNORUBICIN [Suspect]
     Active Substance: DAUNORUBICIN
     Indication: Acute myeloid leukaemia
     Dosage: UNK, 7 + 3 REGIMEN
     Dates: start: 202111
  3. GEMTUZUMAB OZOGAMICIN [Suspect]
     Active Substance: GEMTUZUMAB OZOGAMICIN
     Indication: Acute myeloid leukaemia
     Dosage: UNK, 7 + 3 REGIMEN
     Dates: start: 202111
  4. LEUPROLIDE ACETATE [Suspect]
     Active Substance: ISOPROPYL ALCOHOL\LEUPROLIDE ACETATE
     Indication: Acute myeloid leukaemia
     Dosage: UNK, 7 + 3 REGIMEN
     Dates: start: 202111

REACTIONS (12)
  - Intestinal ischaemia [Recovered/Resolved]
  - Intestinal haematoma [Recovered/Resolved]
  - Neutropenic colitis [Recovered/Resolved]
  - Thrombocytopenia [Recovered/Resolved]
  - Gastrointestinal necrosis [Recovered/Resolved]
  - Peritonitis [Recovered/Resolved]
  - Intestinal stenosis [Recovered/Resolved]
  - Enterocutaneous fistula [Recovered/Resolved]
  - Alpha haemolytic streptococcal infection [Recovered/Resolved]
  - Febrile neutropenia [Recovered/Resolved]
  - Candida infection [Recovered/Resolved]
  - Enterobacter infection [Recovered/Resolved]

NARRATIVE: CASE EVENT DATE: 20210101
